FAERS Safety Report 7832076-3 (Version None)
Quarter: 2011Q4

REPORT INFORMATION
  Report Type: 
  Country: None (occurrence: None)
  Receive Date: 20111022
  Receipt Date: 20111011
  Transmission Date: 20120403
  Serious: Yes (Hospitalization, Other)
  Sender: FDA-Public Use
  Company Number: US-BAYER-2010-006700

PATIENT
  Age: 19 Year
  Sex: Female
  Weight: 74.83 kg

DRUGS (9)
  1. NEXIUM [Concomitant]
  2. YASMIN [Suspect]
     Indication: ACNE
  3. DROSPIRENONE AND ETHINYL ESTRADIOL [Suspect]
     Indication: PREMENSTRUAL SYNDROME
  4. YASMIN [Suspect]
     Indication: CONTRACEPTION
     Dosage: UNK
     Dates: start: 20070106, end: 20091205
  5. DROSPIRENONE AND ETHINYL ESTRADIOL [Suspect]
     Indication: CONTRACEPTION
     Dosage: UNK
     Dates: start: 20070106, end: 20091205
  6. YASMIN [Suspect]
     Indication: PREMENSTRUAL SYNDROME
  7. PHENERGAN HCL [Concomitant]
  8. ROZEREM [Concomitant]
  9. DROSPIRENONE AND ETHINYL ESTRADIOL [Suspect]
     Indication: ACNE

REACTIONS (4)
  - ANXIETY [None]
  - CHOLECYSTITIS CHRONIC [None]
  - PAIN [None]
  - CHOLELITHIASIS [None]
